FAERS Safety Report 25555073 (Version 1)
Quarter: 2025Q3

REPORT INFORMATION
  Report Type: Spontaneous
  Country: EU (occurrence: EU)
  Receive Date: 20250715
  Receipt Date: 20250715
  Transmission Date: 20251021
  Serious: Yes (Other)
  Sender: INCYTE
  Company Number: EU-002147023-NVSC2025FR096866

PATIENT

DRUGS (3)
  1. RUXOLITINIB [Suspect]
     Active Substance: RUXOLITINIB
     Indication: Polycythaemia vera
     Dosage: 10 MG, BID
  2. RUXOLITINIB [Suspect]
     Active Substance: RUXOLITINIB
     Dosage: 10 MG, QD
  3. ASPIRIN [Concomitant]
     Active Substance: ASPIRIN
     Indication: Thrombosis prophylaxis
     Dosage: 100 MG, QD

REACTIONS (10)
  - Herpes zoster [Recovered/Resolved]
  - Herpes simplex [Recovered/Resolved]
  - Leukoencephalopathy [Unknown]
  - Cerebral atrophy [Unknown]
  - Adverse event [Unknown]
  - Off label use [Unknown]
  - Breast haematoma [Recovered/Resolved]
  - Cystitis [Not Recovered/Not Resolved]
  - Weight increased [Not Recovered/Not Resolved]
  - Vertigo [Recovered/Resolved]
